FAERS Safety Report 6019173-2 (Version None)
Quarter: 2008Q4

REPORT INFORMATION
  Report Type: 
  Country: None (occurrence: None)
  Receive Date: 20081224
  Receipt Date: 20081215
  Transmission Date: 20090506
  Serious: Yes (Other)
  Sender: FDA-Public Use
  Company Number: DE-PFIZER INC-2008086810

PATIENT

DRUGS (8)
  1. LYRICA [Suspect]
     Indication: NEURALGIA
     Dosage: 150 MG, 2X/DAY
     Route: 048
     Dates: start: 20080101, end: 20081001
  2. LYRICA [Suspect]
     Dosage: 50 MG, 2X/DAY
     Route: 048
     Dates: start: 20080101
  3. METHYLPREDNISOLONE [Concomitant]
     Indication: VASCULITIS
     Dosage: UNK
     Dates: start: 20080101
  4. AZATHIOPRINE [Concomitant]
     Dosage: UNK
     Dates: start: 20080101, end: 20080701
  5. ENDOXAN [Concomitant]
     Dosage: ONCE MONTHLY
     Route: 042
     Dates: start: 20080801
  6. ANTIBIOTICS [Concomitant]
     Indication: URINARY TRACT INFECTION
     Dosage: UNK
  7. PANTOPRAZOL [Concomitant]
     Indication: PROPHYLAXIS AGAINST GASTROINTESTINAL ULCER
  8. HEPARIN SODIUM [Concomitant]

REACTIONS (5)
  - GLOMERULAR FILTRATION RATE DECREASED [None]
  - MUSCLE SPASMS [None]
  - MUSCLE TWITCHING [None]
  - NEURALGIA [None]
  - VENOUS THROMBOSIS [None]
